FAERS Safety Report 9149564 (Version 1)
Quarter: 2013Q1

REPORT INFORMATION
  Report Type: Spontaneous
  Country: US (occurrence: US)
  Receive Date: 20130308
  Receipt Date: 20130308
  Transmission Date: 20140127
  Serious: No
  Sender: FDA-Public Use
  Company Number: US-PFIZER INC-2013079001

PATIENT
  Age: 59 Year
  Sex: 0

DRUGS (4)
  1. DILANTIN [Suspect]
     Dosage: 300 MG, 2X/DAY
  2. HYDROXYCHLOROQUINE SULFATE [Suspect]
     Dosage: UNK
  3. ENOXAPARIN [Suspect]
     Dosage: UNK
  4. BACLOFEN [Suspect]
     Dosage: UNK

REACTIONS (1)
  - Dizziness [Unknown]
